FAERS Safety Report 5280697-7 (Version None)
Quarter: 2007Q1

REPORT INFORMATION
  Report Type: 
  Country: None (occurrence: None)
  Receive Date: 20061221
  Receipt Date: 20060911
  Transmission Date: 20070707
  Serious: No
  Sender: FDA-Public Use
  Company Number: US-CVT-061883

PATIENT
  Age: 89 Year
  Sex: Male
  Weight: 65.8 kg

DRUGS (17)
  1. RANEXA [Suspect]
     Indication: ANGINA PECTORIS
     Dosage: 500 MG, BID, ORAL
     Route: 048
     Dates: start: 20060828, end: 20060914
  2. ZETIA [Concomitant]
  3. FELODIPINE [Concomitant]
  4. PLAVIX [Concomitant]
  5. ISOSORBIDE (ISOSORBIDE) [Concomitant]
  6. LESCOL [Concomitant]
  7. MAXZIDE [Concomitant]
  8. TOPROL-XL [Concomitant]
  9. FOSAMAX [Concomitant]
  10. TRAVATAN [Concomitant]
  11. XALATAN [Concomitant]
  12. NITROGLYCERIN [Concomitant]
  13. MVI (VITAMINS NOS) [Concomitant]
  14. CALCIUM (CALCIUM CARBONATE, CALCIUM LACTOGLUCONATE) [Concomitant]
  15. ASPIRIN [Concomitant]
  16. ADVIL [Concomitant]
  17. FLEXERIL [Concomitant]

REACTIONS (2)
  - ANGINA PECTORIS [None]
  - CONSTIPATION [None]
